FAERS Safety Report 7622747-6 (Version None)
Quarter: 2011Q3

REPORT INFORMATION
  Report Type: 
  Country: None (occurrence: None)
  Receive Date: 20110719
  Receipt Date: 20110719
  Transmission Date: 20111222
  Serious: Yes (Life-Threatening)
  Sender: FDA-Public Use
  Company Number: None

PATIENT
  Age: 63 Year
  Sex: Male
  Weight: 99.7913 kg

DRUGS (2)
  1. SINGULAIR [Suspect]
     Indication: BRONCHITIS
     Dosage: 1 TAB TOOK ONLY 1 TAB PO
     Route: 048
     Dates: start: 20110618, end: 20110618
  2. SINGULAIR [Suspect]
     Indication: PNEUMONIA
     Dosage: 1 TAB TOOK ONLY 1 TAB PO
     Route: 048
     Dates: start: 20110618, end: 20110618

REACTIONS (5)
  - ASTHENIA [None]
  - DIZZINESS [None]
  - BLOOD PRESSURE DECREASED [None]
  - PALLOR [None]
  - HEART RATE DECREASED [None]
